FAERS Safety Report 4552291-4 (Version None)
Quarter: 2005Q1

REPORT INFORMATION
  Report Type: 
  Country: None (occurrence: None)
  Receive Date: 20050112
  Receipt Date: 20041223
  Transmission Date: 20050727
  Serious: No
  Sender: FDA-Public Use
  Company Number: USA030640416

PATIENT
  Age: 66 Year
  Sex: Female
  Weight: 52 kg

DRUGS (7)
  1. FORTEO [Suspect]
     Indication: OSTEOPOROSIS
     Dosage: 20 UG/1 DAY
     Dates: start: 20030625
  2. PRILOSEC [Concomitant]
  3. ALLEGRA-D [Concomitant]
  4. FLONASE [Concomitant]
  5. LIPITOR [Concomitant]
  6. TYLENOL [Concomitant]
  7. TUMS (CALCIUM CARBONATE) [Concomitant]

REACTIONS (11)
  - ARTHRALGIA [None]
  - BACK PAIN [None]
  - BLADDER NEOPLASM [None]
  - FATIGUE [None]
  - FLATULENCE [None]
  - HAEMATURIA [None]
  - INJECTION SITE PAIN [None]
  - MUSCLE SPASMS [None]
  - ORAL DISCOMFORT [None]
  - PAIN [None]
  - PHARMACEUTICAL PRODUCT COMPLAINT [None]
